FAERS Safety Report 18474465 (Version 1)
Quarter: 2020Q4

REPORT INFORMATION
  Report Type: Spontaneous
  Country: US (occurrence: US)
  Receive Date: 20201106
  Receipt Date: 20201106
  Transmission Date: 20210114
  Serious: No
  Sender: FDA-Public Use
  Company Number: US-SA-2020SA310696

PATIENT

DRUGS (1)
  1. TAXOTERE [Suspect]
     Active Substance: DOCETAXEL
     Indication: PROSTATE CANCER
     Dosage: 140 MG, Q3W
     Route: 065
     Dates: start: 20201027

REACTIONS (1)
  - Atrial septal defect [Unknown]

NARRATIVE: CASE EVENT DATE: 20201103
